FAERS Safety Report 9617572 (Version 3)
Quarter: 2013Q4

REPORT INFORMATION
  Report Type: Spontaneous
  Country: US (occurrence: None)
  Receive Date: 20131009
  Receipt Date: 20131016
  Transmission Date: 20140711
  Serious: Yes (Death, Hospitalization, Other)
  Sender: FDA-Public Use
  Company Number: ADR-2013-01803

PATIENT
  Sex: Male

DRUGS (4)
  1. BACLOFEN [Suspect]
     Indication: CANCER PAIN
     Dates: start: 20040422
  2. HYDROMORPHONE [Suspect]
  3. BUPIVACAINE [Suspect]
  4. CLONIDINE [Suspect]

REACTIONS (10)
  - Pain [None]
  - Unresponsive to stimuli [None]
  - Device breakage [None]
  - Sedation [None]
  - Dyspnoea [None]
  - Confusional state [None]
  - Dysphagia [None]
  - Oesophageal dilatation [None]
  - Drug ineffective [None]
  - Incorrect dose administered [None]
